FAERS Safety Report 22080283 (Version 1)
Quarter: 2023Q1

REPORT INFORMATION
  Report Type: Report from Study
  Country: EG (occurrence: EG)
  Receive Date: 20230309
  Receipt Date: 20230309
  Transmission Date: 20230418
  Serious: Yes (Other)
  Sender: FDA-Public Use
  Company Number: EG-002147023-NVSC2023EG044697

PATIENT
  Sex: Female

DRUGS (11)
  1. COSENTYX [Suspect]
     Active Substance: SECUKINUMAB
     Indication: Psoriatic arthropathy
     Dosage: 300 MG, QMO (150 MG 2 PREFILLED PEN MONTHLY WITHOUT LOADING DOSE
     Route: 065
     Dates: start: 20230211
  2. COSENTYX [Suspect]
     Active Substance: SECUKINUMAB
     Indication: Macule
  3. NEURONTIN [Concomitant]
     Active Substance: GABAPENTIN
     Indication: Hypoaesthesia
     Dosage: UNK, QD (AT NIGHT BEFORE SLEEP)
     Route: 065
     Dates: start: 202106
  4. NEURONTIN [Concomitant]
     Active Substance: GABAPENTIN
     Indication: Insomnia
  5. TRYPTIZOL [Concomitant]
     Active Substance: AMITRIPTYLINE HYDROCHLORIDE
     Indication: Hypoaesthesia
     Dosage: UNK, QD (AT NIGHT BEFORE SLEEP)
     Route: 065
     Dates: start: 202106
  6. TRYPTIZOL [Concomitant]
     Active Substance: AMITRIPTYLINE HYDROCHLORIDE
     Indication: Insomnia
  7. RELAX [Concomitant]
     Indication: Product used for unknown indication
     Dosage: UNK (AS NEEDED)
     Route: 065
  8. EBASTINE [Concomitant]
     Active Substance: EBASTINE
     Indication: Asthma
     Dosage: UNK, PRN
     Route: 065
  9. EBASTINE [Concomitant]
     Active Substance: EBASTINE
     Indication: Hypersensitivity
  10. INALER [Concomitant]
     Indication: Asthma
     Dosage: UNK UNK, PRN
     Route: 065
  11. INALER [Concomitant]
     Indication: Hypersensitivity

REACTIONS (7)
  - Choking [Not Recovered/Not Resolved]
  - Angina pectoris [Not Recovered/Not Resolved]
  - Movement disorder [Not Recovered/Not Resolved]
  - Oropharyngeal pain [Not Recovered/Not Resolved]
  - Somnolence [Not Recovered/Not Resolved]
  - Laziness [Not Recovered/Not Resolved]
  - Incorrect dose administered [Unknown]
